FAERS Safety Report 9170837 (Version 1)
Quarter: 2013Q1

REPORT INFORMATION
  Report Type: Spontaneous
  Country: IT (occurrence: None)
  Receive Date: 20130311
  Receipt Date: 20130311
  Transmission Date: 20140127
  Serious: Yes (Other)
  Sender: FDA-Public Use
  Company Number: GER/ITL/13/0028383

PATIENT
  Age: 65 Year
  Sex: Female

DRUGS (6)
  1. CLOPIDOGREL (CLOPIDOGREL) [Suspect]
     Indication: PROPHYLAXIS
     Dosage: 1 DOSAGE FORMS, 1 IN 1 D, ORAL
     Route: 048
     Dates: start: 20120618, end: 20130212
  2. CARDIOASPIRIN (ACETYLSALICYLIC ACID) [Suspect]
     Indication: PROPHYLAXIS
     Dosage: 1 DOSAGE FORMS, 1 IN 1 D, ORAL
     Route: 048
     Dates: start: 20120618, end: 20130212
  3. EUTIROX(LEVOTHYROXINE SODIUM) [Concomitant]
  4. TAREG(VALSARTAN) [Concomitant]
  5. BISOPROLOL FUMARATE(BISOPROLOL FUMARATE) [Concomitant]
  6. EZETIMIBE(EZETIMIBE) [Concomitant]

REACTIONS (3)
  - Haematuria [None]
  - Strangury [None]
  - Dysuria [None]
